FAERS Safety Report 7902511-0 (Version None)
Quarter: 2011Q4

REPORT INFORMATION
  Report Type: 
  Country: None (occurrence: None)
  Receive Date: 20111108
  Receipt Date: 20111026
  Transmission Date: 20120403
  Serious: Yes (Hospitalization, Other)
  Sender: FDA-Public Use
  Company Number: US-ELI_LILLY_AND_COMPANY-US201111001265

PATIENT
  Age: 78 Year
  Sex: Female

DRUGS (11)
  1. ANALGESICS [Concomitant]
     Dosage: UNK, 2/W
  2. CALCIUM [Concomitant]
     Dosage: 1200 MG, QD
  3. FORTEO [Suspect]
     Indication: OSTEOPOROSIS
     Dosage: 20 UG, QD
     Route: 065
  4. AVAPRO [Concomitant]
     Indication: BLOOD PRESSURE ABNORMAL
     Dosage: 75 MG, UNK
  5. FORTEO [Suspect]
     Dosage: 20 UG, QD
     Route: 065
     Dates: start: 20111017
  6. MAGNESIUM [Concomitant]
  7. VERAPAMIL [Concomitant]
     Indication: BLOOD PRESSURE ABNORMAL
     Dosage: 120 MG, UNK
  8. MEDROL [Concomitant]
     Dosage: 1 MG, UNK
  9. VITAMIN D [Concomitant]
  10. LAXATIVES [Concomitant]
     Dosage: UNK
  11. OMEPRAZOLE [Concomitant]
     Indication: GASTROOESOPHAGEAL REFLUX DISEASE

REACTIONS (5)
  - MOVEMENT DISORDER [None]
  - MEDICATION ERROR [None]
  - FALL [None]
  - UPPER LIMB FRACTURE [None]
  - FACE INJURY [None]
